FAERS Safety Report 4583917-7 (Version None)
Quarter: 2005Q1

REPORT INFORMATION
  Report Type: 
  Country: None (occurrence: None)
  Receive Date: 20050216
  Receipt Date: 20041109
  Transmission Date: 20050727
  Serious: No
  Sender: FDA-Public Use
  Company Number: US-GLAXOSMITHKLINE-A0533795A

PATIENT
  Age: 77 Year
  Sex: Male
  Weight: 74.1 kg

DRUGS (1)
  1. AVODART [Suspect]
     Route: 048
     Dates: start: 20040126, end: 20041001

REACTIONS (2)
  - RASH PAPULAR [None]
  - SKIN EXFOLIATION [None]
